FAERS Safety Report 13659454 (Version 1)
Quarter: 2017Q2

REPORT INFORMATION
  Report Type: Spontaneous
  Country: US (occurrence: US)
  Receive Date: 20170615
  Receipt Date: 20170615
  Transmission Date: 20170830
  Serious: Yes (Other)
  Sender: FDA-Public Use
  Company Number: None

PATIENT
  Age: 73 Year
  Sex: Female
  Weight: 74.25 kg

DRUGS (24)
  1. VIBERZI [Suspect]
     Active Substance: ELUXADOLINE
     Indication: COLITIS MICROSCOPIC
     Dosage: ?          QUANTITY:1 TABLET(S);?
     Route: 048
  2. EYE SUPPLEMENT [Concomitant]
  3. VITAMIN E [Concomitant]
     Active Substance: .ALPHA.-TOCOPHEROL
  4. MAGNESIUM [Concomitant]
     Active Substance: MAGNESIUM
  5. OMEGA 3 [Concomitant]
     Active Substance: OMEGA-3 FATTY ACIDS
  6. VITAMIN K [Concomitant]
     Active Substance: PHYTONADIONE
  7. COQ10 [Concomitant]
     Active Substance: UBIDECARENONE
  8. BONE BROTH POWDER [Concomitant]
  9. ACTIVE B12 [Concomitant]
  10. S-ADENOSYLMETHIONINE SULFATE P-TOLUENESULFONATE [Concomitant]
     Active Substance: ADEMETIONINE SULFATE TOSILATE
  11. PROBIOTICS [Concomitant]
     Active Substance: PROBIOTICS NOS
  12. CALCIUM AND VITAMIN D [Concomitant]
     Active Substance: CALCIUM\VITAMIN D
  13. L-GLUTAMINE [Concomitant]
  14. VITAMIN B COMPLEX [Concomitant]
     Active Substance: CYANOCOBALAMIN\DEXPANTHENOL\NIACINAMIDE\PYRIDOXINE HYDROCHLORIDE\RIBOFLAVIN 5^-PHOSPHATE SODIUM\THIAMINE HYDROCHLORIDE\VITAMIN B COMPLEX
  15. ENTERGAMMA [Concomitant]
  16. BIOIDENTICAL HORMONE [Concomitant]
  17. WPTHYROID [Concomitant]
     Active Substance: THYROID, PORCINE
  18. MILK THISTLE [Concomitant]
     Active Substance: MILK THISTLE
  19. VITAMIN C [Concomitant]
     Active Substance: ASCORBIC ACID
  20. ORGANIC GREEN JUICE [Concomitant]
  21. WELCHOL [Concomitant]
     Active Substance: COLESEVELAM HYDROCHLORIDE
  22. ETOCORT [Concomitant]
  23. VITAMIN D [Concomitant]
     Active Substance: CHOLECALCIFEROL
  24. ORGANIC CRANBERRIES [Concomitant]

REACTIONS (3)
  - Abdominal pain [None]
  - Constipation [None]
  - Nausea [None]

NARRATIVE: CASE EVENT DATE: 20150615
